FAERS Safety Report 24131564 (Version 1)
Quarter: 2024Q3

REPORT INFORMATION
  Report Type: Spontaneous
  Country: ZW (occurrence: ZW)
  Receive Date: 20240724
  Receipt Date: 20240724
  Transmission Date: 20241017
  Serious: Yes (Other)
  Sender: MYLAN
  Company Number: ZW-MYLANLABS-2024M1068111

PATIENT
  Age: 7 Year
  Sex: Male

DRUGS (4)
  1. LAMIVUDINE\NEVIRAPINE\STAVUDINE [Suspect]
     Active Substance: LAMIVUDINE\NEVIRAPINE\STAVUDINE
     Indication: HIV infection
     Dosage: UNK
     Route: 065
     Dates: start: 201009, end: 201501
  2. DOLUTEGRAVIR\LAMIVUDINE\TENOFOVIR DISOPROXIL FUMARATE [Suspect]
     Active Substance: DOLUTEGRAVIR\LAMIVUDINE\TENOFOVIR DISOPROXIL FUMARATE
     Indication: HIV infection
     Dosage: UNK
     Route: 065
     Dates: start: 201908
  3. EFAVIRENZ\LAMIVUDINE\STAVUDINE [Suspect]
     Active Substance: EFAVIRENZ\LAMIVUDINE\STAVUDINE
     Indication: HIV infection
     Dosage: UNK
     Route: 065
     Dates: start: 201009, end: 201501
  4. EFAVIRENZ\LAMIVUDINE\ZIDOVUDINE [Suspect]
     Active Substance: EFAVIRENZ\LAMIVUDINE\ZIDOVUDINE
     Indication: HIV infection
     Dosage: UNK
     Route: 065
     Dates: start: 201009, end: 201501

REACTIONS (2)
  - Treatment failure [Unknown]
  - Drug resistance mutation [Unknown]
